FAERS Safety Report 23979976 (Version 3)
Quarter: 2024Q4

REPORT INFORMATION
  Report Type: Other
  Country: GB (occurrence: GB)
  Receive Date: 20240617
  Receipt Date: 20241203
  Transmission Date: 20250115
  Serious: No
  Sender: BIOCON
  Company Number: GB-SANDOZ-SDZ2023GB055684

PATIENT

DRUGS (19)
  1. ADALIMUMAB [Suspect]
     Active Substance: ADALIMUMAB
     Indication: Hidradenitis
     Dosage: 40 MG, QW (SOLUTION FOR INJECTION)
     Route: 065
  2. ADALIMUMAB [Suspect]
     Active Substance: ADALIMUMAB
     Indication: Product used for unknown indication
     Dosage: 40 MG, QW (SOLUTION FOR INJECTION)
     Route: 065
  3. ADALIMUMAB [Suspect]
     Active Substance: ADALIMUMAB
     Dosage: 40 MG, QW (SOLUTION FOR INJECTION)
     Route: 065
  4. ADALIMUMAB [Suspect]
     Active Substance: ADALIMUMAB
     Dosage: 40 MG, QW (SOLUTION FOR INJECTION)
     Route: 065
  5. ADALIMUMAB [Suspect]
     Active Substance: ADALIMUMAB
     Dosage: 40 MG, QW (SOLUTION FOR INJECTION)
     Route: 065
  6. CLINDAMYCIN [Suspect]
     Active Substance: CLINDAMYCIN
     Indication: Hidradenitis
     Dosage: 300 MG, BID,
     Route: 048
  7. CLINDAMYCIN [Suspect]
     Active Substance: CLINDAMYCIN
     Dosage: 300 MILLIGRAM
     Route: 048
  8. CLINDAMYCIN [Suspect]
     Active Substance: CLINDAMYCIN
     Dosage: 300 MG, BID,
     Route: 048
  9. DOXYCYCLINE [Suspect]
     Active Substance: DOXYCYCLINE
     Indication: Hidradenitis
     Dosage: 200 MG, QD
     Route: 065
  10. DOXYCYCLINE [Suspect]
     Active Substance: DOXYCYCLINE
     Dosage: 200 MG, QD
     Route: 065
  11. DOXYCYCLINE [Suspect]
     Active Substance: DOXYCYCLINE
     Dosage: 200 MG, QD,
     Route: 065
  12. RIFAMPIN [Suspect]
     Active Substance: RIFAMPIN
     Indication: Hidradenitis
     Dosage: 300 MG, BID
     Route: 048
  13. RIFAMPIN [Suspect]
     Active Substance: RIFAMPIN
     Dosage: 300 MG, BID
     Route: 065
  14. RIFAMPIN [Suspect]
     Active Substance: RIFAMPIN
     Dosage: 300 MG, BID
     Route: 065
  15. RIFAMPIN [Suspect]
     Active Substance: RIFAMPIN
     Dosage: 300 MG, BID
     Route: 048
  16. RIFAMPIN [Suspect]
     Active Substance: RIFAMPIN
     Dosage: 600 MILLIGRAM, QD (300 MG, BID, TWICE A DAY)
     Route: 048
  17. ADALIMUMAB [Suspect]
     Active Substance: ADALIMUMAB
     Indication: Product used for unknown indication
     Dosage: UNK
     Route: 065
  18. DOXYCYCLINE [Suspect]
     Active Substance: DOXYCYCLINE
     Indication: Hidradenitis
     Dosage: 200 MG, QD
     Route: 065
  19. CLINDAMYCIN HYDROCHLORIDE [Suspect]
     Active Substance: CLINDAMYCIN HYDROCHLORIDE
     Indication: Hidradenitis
     Dosage: 300 MG, BID
     Route: 048

REACTIONS (5)
  - Medication error [Unknown]
  - Hidradenitis [Unknown]
  - Condition aggravated [Unknown]
  - Product use in unapproved indication [Unknown]
  - Off label use [Unknown]
